FAERS Safety Report 5769149-5 (Version None)
Quarter: 2008Q2

REPORT INFORMATION
  Report Type: 
  Country: None (occurrence: None)
  Receive Date: 20080612
  Receipt Date: 20080318
  Transmission Date: 20081010
  Serious: No
  Sender: FDA-Public Use
  Company Number: US-ABBOTT-08P-163-0443444-00

PATIENT
  Sex: Male
  Weight: 78.542 kg

DRUGS (4)
  1. HUMIRA [Suspect]
     Indication: CROHN'S DISEASE
     Route: 058
  2. HUMIRA [Suspect]
     Dates: start: 20070501
  3. HUMIRA [Suspect]
  4. HUMIRA [Suspect]
     Route: 058
     Dates: start: 20080318

REACTIONS (1)
  - INJECTION SITE IRRITATION [None]
